FAERS Safety Report 13586996 (Version 1)
Quarter: 2017Q2

REPORT INFORMATION
  Report Type: Spontaneous
  Country: US (occurrence: US)
  Receive Date: 20170526
  Receipt Date: 20170526
  Transmission Date: 20170830
  Serious: Yes (Other)
  Sender: FDA-Public Use
  Company Number: US-ROCHE-1812645

PATIENT
  Sex: Male

DRUGS (8)
  1. VALCYTE [Suspect]
     Active Substance: VALGANCICLOVIR HYDROCHLORIDE
     Indication: GLIOBLASTOMA
     Dosage: TWICE A DAY IN THE MORNING AND NIGHT
     Route: 065
  2. CARBIDOPA/LEVODOPA [Concomitant]
     Active Substance: CARBIDOPA\LEVODOPA
     Indication: PARKINSON^S DISEASE
     Dosage: 50-200 MG ONCE A DAY
     Route: 065
  3. BETAPACE [Concomitant]
     Active Substance: SOTALOL HYDROCHLORIDE
     Indication: SUPRAVENTRICULAR TACHYCARDIA
     Dosage: 80 MG TWICE A DAY
     Route: 065
  4. REMERON [Concomitant]
     Active Substance: MIRTAZAPINE
     Indication: TREMOR
     Route: 065
  5. MYSOLINE [Concomitant]
     Active Substance: PRIMIDONE
     Indication: PARKINSON^S DISEASE
     Dosage: 2 PER DAY
     Route: 065
  6. AMANTADINE. [Concomitant]
     Active Substance: AMANTADINE HYDROCHLORIDE
     Indication: PARKINSON^S DISEASE
     Route: 065
  7. STALEVO (UNITED STATES) [Concomitant]
     Indication: PARKINSON^S DISEASE
     Dosage: FOUR TIMES A DAY?IN PROCESS OF TITRATING UP TO 200 MG 4 TIMES A DAY
     Route: 065
  8. TEMODAR [Concomitant]
     Active Substance: TEMOZOLOMIDE
     Indication: CHEMOTHERAPY
     Dosage: ON HOLD START AGAIN NEXT TUESDAY 16/AUG/2016
     Route: 065

REACTIONS (2)
  - Tremor [Not Recovered/Not Resolved]
  - Asthenia [Unknown]
